FAERS Safety Report 9548498 (Version 1)
Quarter: 2013Q2

REPORT INFORMATION
  Report Type: Spontaneous
  Country: US (occurrence: None)
  Receive Date: 20130627
  Receipt Date: 20130627
  Transmission Date: 20140414
  Serious: Yes (Other)
  Sender: FDA-Public Use
  Company Number: 1000043257

PATIENT
  Age: 51 Year
  Sex: Female

DRUGS (7)
  1. LINZESS [Suspect]
     Indication: CONSTIPATION
     Route: 048
     Dates: start: 20130227, end: 20130307
  2. LORAZEPAM [Concomitant]
  3. ASPIRIN (ACETYLSALICYLIC ACID) [Concomitant]
  4. OMEPRAZOLE [Concomitant]
  5. FISH OIL [Concomitant]
  6. MTV (VITAMINS NOS) [Concomitant]
  7. DULCOLAX (BISACODYL) [Concomitant]

REACTIONS (1)
  - Rash [None]
